FAERS Safety Report 10907290 (Version 1)
Quarter: 2015Q1

REPORT INFORMATION
  Report Type: Spontaneous
  Country: CA (occurrence: CA)
  Receive Date: 20150312
  Receipt Date: 20150312
  Transmission Date: 20150721
  Serious: Yes (Other)
  Sender: FDA-Public Use
  Company Number: CA-TEVA-546977ACC

PATIENT
  Sex: Male

DRUGS (2)
  1. TEVA-METOPROLOL UNCOATED [Suspect]
     Active Substance: METOPROLOL
     Dosage: 100 MILLIGRAM DAILY;
     Route: 065
  2. TEVA-METOPROLOL UNCOATED [Suspect]
     Active Substance: METOPROLOL
     Indication: HEART RATE INCREASED
     Dosage: 25 MILLIGRAM DAILY;
     Route: 065

REACTIONS (3)
  - Sluggishness [Unknown]
  - Heart rate decreased [Unknown]
  - Loss of consciousness [Unknown]
